FAERS Safety Report 7217071-X (Version None)
Quarter: 2011Q1

REPORT INFORMATION
  Report Type: 
  Country: None (occurrence: None)
  Receive Date: 20110110
  Receipt Date: 20101228
  Transmission Date: 20110831
  Serious: Yes (Hospitalization, Other)
  Sender: FDA-Public Use
  Company Number: DE-ELI_LILLY_AND_COMPANY-DE201011001125

PATIENT
  Sex: Female
  Weight: 58.4 kg

DRUGS (2)
  1. ZYPADHERA [Suspect]
     Indication: SCHIZOPHRENIA, PARANOID TYPE
     Dosage: 405 MG, UNKNOWN
     Route: 030
     Dates: start: 20100201, end: 20101107
  2. VALPROAT [Concomitant]
     Dosage: 1000 MG, UNKNOWN
     Route: 048
     Dates: start: 20100201

REACTIONS (11)
  - ATAXIA [None]
  - AGGRESSION [None]
  - ANXIETY [None]
  - DELIRIUM [None]
  - DRUG LEVEL INCREASED [None]
  - VOMITING [None]
  - CONFUSIONAL STATE [None]
  - AGITATION [None]
  - SEDATION [None]
  - DISORIENTATION [None]
  - DYSARTHRIA [None]
